FAERS Safety Report 5444893-8 (Version None)
Quarter: 2007Q3

REPORT INFORMATION
  Report Type: 
  Country: None (occurrence: None)
  Receive Date: 20070906
  Receipt Date: 20070904
  Transmission Date: 20080115
  Serious: Yes (Disabling, Other)
  Sender: FDA-Public Use
  Company Number: A0658936A

PATIENT
  Age: 53 Year
  Sex: Female
  Weight: 85.5 kg

DRUGS (14)
  1. LAMICTAL [Suspect]
     Indication: BIPOLAR DISORDER
     Dosage: 100MG PER DAY
     Route: 048
     Dates: start: 20070425, end: 20070617
  2. PROVIGIL [Suspect]
     Indication: DRUG USE FOR UNKNOWN INDICATION
     Dates: start: 20070515
  3. PROZAC [Concomitant]
  4. ATIVAN [Concomitant]
  5. SEROQUEL [Concomitant]
  6. POTASSIUM CHLORIDE [Concomitant]
  7. CALCIUM [Concomitant]
  8. VITAMIN B-12 [Concomitant]
  9. VITAMIN B6 [Concomitant]
  10. NEXIUM [Concomitant]
  11. ROZEREM [Concomitant]
  12. ATARAX [Concomitant]
  13. CATAPRES [Concomitant]
  14. BENADRYL [Concomitant]

REACTIONS (18)
  - ASTHENIA [None]
  - BALANCE DISORDER [None]
  - BLEPHAROSPASM [None]
  - DEPRESSION [None]
  - EXCESSIVE EYE BLINKING [None]
  - EYE MOVEMENT DISORDER [None]
  - EYELID PAIN [None]
  - FALL [None]
  - GAIT DISTURBANCE [None]
  - LETHARGY [None]
  - MOOD SWINGS [None]
  - RASH [None]
  - SOMNOLENCE [None]
  - URTICARIA [None]
  - VISION BLURRED [None]
  - VISUAL ACUITY REDUCED [None]
  - VISUAL ACUITY TESTS ABNORMAL [None]
  - VISUAL FIELD DEFECT [None]
